FAERS Safety Report 13057704 (Version 2)
Quarter: 2017Q1

REPORT INFORMATION
  Report Type: Spontaneous
  Country: US (occurrence: US)
  Receive Date: 20161223
  Receipt Date: 20170220
  Transmission Date: 20170428
  Serious: No
  Sender: FDA-Public Use
  Company Number: US-ACADIA PHARMACEUTICALS INC.-ACA-2016-001560

PATIENT
  Age: 77 Year
  Sex: Male
  Weight: 79.37 kg

DRUGS (4)
  1. NUPLAZID [Suspect]
     Active Substance: PIMAVANSERIN TARTRATE
     Indication: HALLUCINATION
     Dosage: 34 MG, QD
     Route: 048
     Dates: start: 20161202, end: 20161212
  2. INSULIN [Concomitant]
     Active Substance: INSULIN NOS
     Indication: TYPE 1 DIABETES MELLITUS
  3. NUPLAZID [Suspect]
     Active Substance: PIMAVANSERIN TARTRATE
     Indication: DELUSION
  4. NUPLAZID [Suspect]
     Active Substance: PIMAVANSERIN TARTRATE
     Indication: PARKINSON^S DISEASE PSYCHOSIS

REACTIONS (6)
  - Blood insulin [Recovering/Resolving]
  - Diarrhoea [Recovered/Resolved]
  - Blood glucose fluctuation [Recovering/Resolving]
  - Abdominal distension [Not Recovered/Not Resolved]
  - Endocrine disorder [Unknown]
  - Weight increased [Unknown]

NARRATIVE: CASE EVENT DATE: 201612
